FAERS Safety Report 21274585 (Version 1)
Quarter: 2022Q3

REPORT INFORMATION
  Report Type: Spontaneous
  Country: PT (occurrence: PT)
  Receive Date: 20220831
  Receipt Date: 20220831
  Transmission Date: 20221027
  Serious: Yes (Disabling)
  Sender: FDA-Public Use
  Company Number: None

PATIENT
  Age: 70 Year
  Sex: Female

DRUGS (1)
  1. ETANERCEPT [Suspect]
     Active Substance: ETANERCEPT
     Indication: Psoriatic arthropathy
     Dosage: STRENGTH: 50 MG/1 ML, DOSE: UNKNOWN
     Route: 058
     Dates: start: 20220803

REACTIONS (7)
  - Muscular weakness [Recovered/Resolved]
  - Arthralgia [Unknown]
  - Muscle spasms [Recovered/Resolved]
  - Ecchymosis [Recovered/Resolved]
  - Muscle rigidity [Unknown]
  - Drug ineffective [Recovered/Resolved]
  - Product substitution issue [Recovered/Resolved]

NARRATIVE: CASE EVENT DATE: 20220801
